FAERS Safety Report 6248348-2 (Version None)
Quarter: 2009Q2

REPORT INFORMATION
  Report Type: 
  Country: None (occurrence: None)
  Receive Date: 20090629
  Receipt Date: 20090618
  Transmission Date: 20091009
  Serious: Yes (Hospitalization)
  Sender: FDA-Public Use
  Company Number: PHHY2009SE24234

PATIENT
  Sex: Female

DRUGS (12)
  1. ACLASTA [Suspect]
     Indication: OSTEOPOROSIS
     Dosage: 5 MG, UNK
     Dates: start: 20090528
  2. FURIX [Concomitant]
  3. LEVOTHYROXINE SODIUM [Concomitant]
  4. SERETIDE DISKUS [Concomitant]
  5. PULMICORT-100 [Concomitant]
  6. BRICANYL [Concomitant]
  7. ACETYLCYSTEIN AL [Concomitant]
  8. VENTOLIN [Concomitant]
  9. OESTROGEN [Concomitant]
  10. ANTIHYPERTENSIVES [Concomitant]
  11. VITAMINS NOS [Concomitant]
  12. ALOE VERA [Concomitant]

REACTIONS (4)
  - ABDOMINAL PAIN [None]
  - DIVERTICULITIS [None]
  - PYREXIA [None]
  - VOMITING [None]
